FAERS Safety Report 24064367 (Version 1)
Quarter: 2024Q3

REPORT INFORMATION
  Report Type: Spontaneous
  Country: US (occurrence: US)
  Receive Date: 20240709
  Receipt Date: 20240709
  Transmission Date: 20241016
  Serious: Yes (Death)
  Sender: MYLAN
  Company Number: US-MYLANLABS-2024M1063755

PATIENT
  Age: 31 Year
  Sex: Male

DRUGS (13)
  1. EPINEPHRINE [Suspect]
     Active Substance: EPINEPHRINE
     Indication: Mast cell activation syndrome
     Dosage: UNK, DRIP
     Route: 030
  2. EPINEPHRINE [Suspect]
     Active Substance: EPINEPHRINE
     Indication: Mast cell activation syndrome
     Dosage: UNK
     Route: 042
  3. DIPHENHYDRAMINE [Suspect]
     Active Substance: DIPHENHYDRAMINE
     Indication: Mast cell activation syndrome
     Dosage: UNK
     Route: 065
  4. CETIRIZINE [Suspect]
     Active Substance: CETIRIZINE HYDROCHLORIDE
     Indication: Mast cell activation syndrome
     Dosage: UNK
     Route: 065
  5. FAMOTIDINE [Suspect]
     Active Substance: FAMOTIDINE
     Indication: Mast cell activation syndrome
     Dosage: UNK
     Route: 065
  6. DEXAMETHASONE [Suspect]
     Active Substance: DEXAMETHASONE
     Indication: Mast cell activation syndrome
     Dosage: UNK
     Route: 065
  7. IMATINIB [Suspect]
     Active Substance: IMATINIB
     Indication: Mastocytic leukaemia
     Dosage: UNK
     Route: 065
  8. AVAPRITINIB [Suspect]
     Active Substance: AVAPRITINIB
     Indication: Mastocytic leukaemia
     Dosage: UNK
     Route: 065
  9. MIDOSTAURIN [Suspect]
     Active Substance: MIDOSTAURIN
     Indication: Mastocytic leukaemia
     Dosage: UNK
     Route: 065
  10. CLADRIBINE [Suspect]
     Active Substance: CLADRIBINE
     Indication: Mastocytic leukaemia
     Dosage: UNK
     Route: 065
  11. MITOXANTRONE [Concomitant]
     Active Substance: MITOXANTRONE HYDROCHLORIDE
     Indication: Mastocytic leukaemia
     Dosage: UNK
     Route: 065
  12. CYTARABINE [Concomitant]
     Active Substance: CYTARABINE
     Indication: Mastocytic leukaemia
     Dosage: UNK
     Route: 065
  13. FILGRASTIM [Concomitant]
     Active Substance: FILGRASTIM
     Indication: Mastocytic leukaemia
     Dosage: UNK
     Route: 065

REACTIONS (2)
  - Drug ineffective [Fatal]
  - Off label use [Unknown]
